FAERS Safety Report 26023709 (Version 1)
Quarter: 2025Q4

REPORT INFORMATION
  Report Type: Spontaneous
  Country: EU (occurrence: EU)
  Receive Date: 20251111
  Receipt Date: 20251111
  Transmission Date: 20260118
  Serious: Yes (Other)
  Sender: REGENERON
  Company Number: EU-BAYER-2025A135051

PATIENT
  Age: 70 Year
  Sex: Male

DRUGS (3)
  1. EYLEA HD [Suspect]
     Active Substance: AFLIBERCEPT
     Indication: Retinal haemorrhage
     Dosage: AFLIBERCEPT 114.3 MG/ML EVERY 4 WEEKS, 114.3 MG/ML
     Route: 031
  2. EYLEA HD [Suspect]
     Active Substance: AFLIBERCEPT
     Indication: Eye pain
  3. EYLEA HD [Suspect]
     Active Substance: AFLIBERCEPT
     Indication: Venous occlusion

REACTIONS (4)
  - Ocular ischaemic syndrome [Unknown]
  - Retinal occlusive vasculitis [Unknown]
  - Visual acuity reduced [Unknown]
  - Anterior chamber flare [Unknown]
